FAERS Safety Report 13254133 (Version 1)
Quarter: 2017Q1

REPORT INFORMATION
  Report Type: Report from Study
  Country: US (occurrence: US)
  Receive Date: 20170221
  Receipt Date: 20170221
  Transmission Date: 20170428
  Serious: Yes (Other)
  Sender: FDA-Public Use
  Company Number: US-ROCHE-1896136

PATIENT
  Age: 2 Day
  Sex: Male

DRUGS (3)
  1. ALTEPLASE [Suspect]
     Active Substance: ALTEPLASE
     Indication: RENAL VEIN THROMBOSIS
     Dosage: DOSE: 0.01 MG/KG/H TITRATED TO A MAXIMUM
     Route: 042
  2. HEPARIN [Concomitant]
     Active Substance: HEPARIN SODIUM
  3. LOW MOLECULAR WEIGHT HEPARIN [Concomitant]
     Active Substance: UNSPECIFIED INGREDIENT

REACTIONS (6)
  - Renal atrophy [Unknown]
  - Acute kidney injury [Unknown]
  - Adrenal haemorrhage [Unknown]
  - Chronic kidney disease [Unknown]
  - Anuria [Unknown]
  - Hypertension [Unknown]
